FAERS Safety Report 12310850 (Version 1)
Quarter: 2016Q2

REPORT INFORMATION
  Report Type: Spontaneous
  Country: PL (occurrence: PL)
  Receive Date: 20160427
  Receipt Date: 20160427
  Transmission Date: 20160815
  Serious: Yes (Life-Threatening, Other)
  Sender: FDA-Public Use
  Company Number: PL-ROXANE LABORATORIES, INC.-2016-RO-00746RO

PATIENT
  Age: 23 Year
  Sex: Female

DRUGS (3)
  1. PEGASPARGASE [Suspect]
     Active Substance: PEGASPARGASE
     Indication: ACUTE LYMPHOCYTIC LEUKAEMIA
     Route: 065
  2. CYCLOPHOSPHAMIDE. [Suspect]
     Active Substance: CYCLOPHOSPHAMIDE
     Indication: ACUTE LYMPHOCYTIC LEUKAEMIA
     Route: 065
  3. CYTARABINE. [Suspect]
     Active Substance: CYTARABINE
     Indication: ACUTE LYMPHOCYTIC LEUKAEMIA
     Route: 065

REACTIONS (7)
  - Renal failure [Unknown]
  - Cholecystitis [Recovered/Resolved]
  - Enterobacter infection [Unknown]
  - Agranulocytosis [Unknown]
  - Neutropenia [Unknown]
  - Candida infection [Unknown]
  - Hepatic failure [Unknown]
